FAERS Safety Report 5872607-6 (Version None)
Quarter: 2008Q3

REPORT INFORMATION
  Report Type: 
  Country: None (occurrence: None)
  Receive Date: 20080905
  Receipt Date: 20080829
  Transmission Date: 20090109
  Serious: Yes (Hospitalization)
  Sender: FDA-Public Use
  Company Number: GB-ROCHE-583713

PATIENT
  Age: 14 Year
  Sex: Male

DRUGS (4)
  1. ISOTRETINOIN [Suspect]
     Route: 065
  2. ISOTRETINOIN [Suspect]
     Route: 065
  3. TRIMETHOPRIM [Concomitant]
  4. DAPSONE [Concomitant]

REACTIONS (6)
  - BONE PAIN [None]
  - CONSTIPATION [None]
  - GAIT DISTURBANCE [None]
  - OSTEITIS [None]
  - SAPHO SYNDROME [None]
  - SPONDYLOLISTHESIS [None]
